FAERS Safety Report 23268466 (Version 3)
Quarter: 2024Q3

REPORT INFORMATION
  Report Type: Report from Study
  Country: GB (occurrence: GB)
  Receive Date: 20231206
  Receipt Date: 20240919
  Transmission Date: 20241017
  Serious: Yes (Other)
  Sender: NOVARTIS
  Company Number: GB-002147023-NVSC2023GB024608

PATIENT
  Sex: Female

DRUGS (4)
  1. COSENTYX [Suspect]
     Active Substance: SECUKINUMAB
     Indication: Product used for unknown indication
     Dosage: UNK (INJECTION NOS)
     Route: 050
  2. COSENTYX [Suspect]
     Active Substance: SECUKINUMAB
     Dosage: UNK (INJECTION NOS)
     Route: 050
  3. COSENTYX [Suspect]
     Active Substance: SECUKINUMAB
     Dosage: UNK (INJECTION NOS)
     Route: 050
  4. COSENTYX [Suspect]
     Active Substance: SECUKINUMAB
     Dosage: UNK
     Route: 065

REACTIONS (10)
  - Lower respiratory tract infection [Recovered/Resolved]
  - Pharyngeal ulceration [Not Recovered/Not Resolved]
  - Skin reaction [Recovered/Resolved]
  - Ear infection [Not Recovered/Not Resolved]
  - Tonsillitis [Recovered/Resolved]
  - Rhinorrhoea [Not Recovered/Not Resolved]
  - Nasopharyngitis [Not Recovered/Not Resolved]
  - Tonsillitis [Recovering/Resolving]
  - Localised infection [Not Recovered/Not Resolved]
  - Skin reaction [Not Recovered/Not Resolved]

NARRATIVE: CASE EVENT DATE: 20230526
